FAERS Safety Report 7301408-7 (Version None)
Quarter: 2011Q1

REPORT INFORMATION
  Report Type: 
  Country: None (occurrence: None)
  Receive Date: 20110113
  Receipt Date: 20100914
  Transmission Date: 20110831
  Serious: No
  Sender: FDA-Public Use
  Company Number: US-001299

PATIENT
  Sex: Male

DRUGS (1)
  1. KUVAN [Suspect]
     Indication: PHENYLKETONURIA
     Dosage: ORAL
     Route: 048
     Dates: start: 20100901

REACTIONS (2)
  - INSOMNIA [None]
  - NASOPHARYNGITIS [None]
